FAERS Safety Report 5917620-5 (Version None)
Quarter: 2008Q4

REPORT INFORMATION
  Report Type: 
  Country: None (occurrence: None)
  Receive Date: 20081014
  Receipt Date: 20081006
  Transmission Date: 20090506
  Serious: Yes (Hospitalization)
  Sender: FDA-Public Use
  Company Number: LV-MERCK-0810HUN00003

PATIENT
  Age: 59 Year
  Sex: Female
  Weight: 57 kg

DRUGS (4)
  1. JANUVIA [Suspect]
     Indication: TYPE 2 DIABETES MELLITUS
     Route: 048
     Dates: start: 20080402, end: 20080926
  2. METFORMIN HCL [Suspect]
     Indication: TYPE 2 DIABETES MELLITUS
     Route: 048
     Dates: start: 20000101
  3. GLIMEPIRIDE [Suspect]
     Indication: TYPE 2 DIABETES MELLITUS
     Route: 048
     Dates: start: 20020101
  4. AMITRIPTYLINE HYDROCHLORIDE [Concomitant]
     Indication: NEUROPATHY PERIPHERAL
     Route: 065
     Dates: start: 20080503, end: 20080728

REACTIONS (4)
  - BILE DUCT STONE [None]
  - METASTASES TO LIVER [None]
  - NEOPLASM MALIGNANT [None]
  - PANCREATITIS [None]
